FAERS Safety Report 8829466 (Version 2)
Quarter: 2012Q4

REPORT INFORMATION
  Report Type: 
  Country: ES (occurrence: ES)
  Receive Date: 20121008
  Receipt Date: 20121018
  Transmission Date: 20130627
  Serious: Yes (Life-Threatening, Hospitalization)
  Sender: FDA-Public Use
  Company Number: ES-PFIZER INC-2012244601

PATIENT
  Age: 80 Year
  Sex: Male

DRUGS (2)
  1. ZELDOX [Suspect]
     Indication: AGITATION
     Dosage: 40 mg, UNK
     Route: 048
     Dates: start: 20120118, end: 20120509
  2. HALOPERIDOL [Interacting]
     Indication: CONFUSIONAL STATE
     Dosage: 1 mg, 3x/day
     Route: 048
     Dates: start: 20120507, end: 20120509

REACTIONS (3)
  - Drug interaction [Recovered/Resolved]
  - Neuroleptic malignant syndrome [Recovered/Resolved]
  - Off label use [Recovered/Resolved]
